FAERS Safety Report 9288003 (Version 1)
Quarter: 2013Q2

REPORT INFORMATION
  Report Type: Spontaneous
  Country: US (occurrence: US)
  Receive Date: 20130514
  Receipt Date: 20130514
  Transmission Date: 20140414
  Serious: Yes (Death)
  Sender: FDA-Public Use
  Company Number: 2013SP001315

PATIENT
  Age: 35 Year
  Sex: Male
  Weight: 90 kg

DRUGS (4)
  1. LATUDA [Suspect]
     Indication: SCHIZOPHRENIA
     Route: 048
     Dates: start: 201210
  2. ABILIFY [Suspect]
     Indication: PRODUCT USED FOR UNKNOWN INDICATION
     Dates: start: 201303
  3. ABILIFY [Suspect]
     Indication: PRODUCT USED FOR UNKNOWN INDICATION
     Dates: end: 201303
  4. SEROQUEL [Concomitant]
     Indication: SCHIZOPHRENIA
     Dates: end: 201210

REACTIONS (3)
  - Completed suicide [Fatal]
  - Joint injury [Unknown]
  - Decreased interest [Unknown]
